FAERS Safety Report 4753465-X (Version None)
Quarter: 2005Q3

REPORT INFORMATION
  Report Type: 
  Country: None (occurrence: None)
  Receive Date: 20050824
  Receipt Date: 20050811
  Transmission Date: 20060218
  Serious: Yes (Hospitalization, Other)
  Sender: FDA-Public Use
  Company Number: HQWYE293320JUL05

PATIENT
  Age: 57 Year
  Sex: Male

DRUGS (14)
  1. CYCLOSPORINE [Suspect]
     Indication: PROPHYLAXIS AGAINST TRANSPLANT REJECTION
     Dosage: 100 MG 2X PER 1 DAY
     Route: 048
     Dates: start: 20030217
  2. MULTIVITAMINS, PLAIN (MULTIVITAMINS, PLAIN) [Concomitant]
  3. FOLIC ACID [Concomitant]
  4. VITAMIN B COMPLEX TAB [Concomitant]
  5. ACETYLSALICYLIC ACID SRT [Concomitant]
  6. ALLOPURINOL [Concomitant]
  7. VITAMIN C (ASCORBIC ACID) [Concomitant]
  8. NITROGLYCERIN ^A.L.^ (GLYCERYL TRINITRATE) [Concomitant]
  9. BENAZEPRIL HCL [Concomitant]
  10. AMLODIPINE [Concomitant]
  11. HYDROCHLOROTHIAZIDE [Concomitant]
  12. ATORVASTATIN CALCIUM [Concomitant]
  13. MYCOPHENOLATE MOFETIL (MYCOPHENOLATE MOFETIL) [Concomitant]
  14. PREDNISONE [Concomitant]

REACTIONS (1)
  - CORONARY ARTERY DISEASE [None]
